FAERS Safety Report 5911249-0 (Version None)
Quarter: 2008Q4

REPORT INFORMATION
  Report Type: 
  Country: None (occurrence: None)
  Receive Date: 20081007
  Receipt Date: 20080926
  Transmission Date: 20090506
  Serious: Yes (Other)
  Sender: FDA-Public Use
  Company Number: GB-ASTRAZENECA-2008AC02597

PATIENT
  Age: 24 Year
  Sex: Male

DRUGS (3)
  1. ESOMEPRAZOLE MAGNESIUM [Suspect]
  2. AZITHROMYCIN [Concomitant]
     Indication: LUNG DISORDER
  3. AZITHROMYCIN [Concomitant]

REACTIONS (1)
  - COLITIS [None]
